FAERS Safety Report 7178797-X (Version None)
Quarter: 2010Q4

REPORT INFORMATION
  Report Type: 
  Country: None (occurrence: None)
  Receive Date: 20101221
  Receipt Date: 20101213
  Transmission Date: 20110411
  Serious: No
  Sender: FDA-Public Use
  Company Number: GB-JNJFOC-20101005544

PATIENT
  Sex: Male

DRUGS (4)
  1. DURAGESIC-100 [Suspect]
     Indication: ARTHRITIS
     Route: 062
  2. FOLIC ACID [Concomitant]
     Indication: ILL-DEFINED DISORDER
     Route: 065
  3. MOVICOL [Concomitant]
     Indication: ILL-DEFINED DISORDER
     Route: 065
  4. PARACETAMOL [Concomitant]
     Indication: ILL-DEFINED DISORDER
     Route: 065

REACTIONS (1)
  - INCORRECT DRUG ADMINISTRATION DURATION [None]
